FAERS Safety Report 4663883-6 (Version None)
Quarter: 2005Q2

REPORT INFORMATION
  Report Type: 
  Country: None (occurrence: None)
  Receive Date: 20050511
  Receipt Date: 20050303
  Transmission Date: 20051028
  Serious: Yes (Other)
  Sender: FDA-Public Use
  Company Number: 374047

PATIENT
  Age: 49 Year
  Sex: Female
  Weight: 81.6 kg

DRUGS (4)
  1. PEGASYS [Suspect]
     Indication: HEPATITIS C
     Dosage: 180 MCG 1 PER WEEK
     Dates: start: 20040215, end: 20040815
  2. COPEGUS [Suspect]
     Indication: HEPATITIS C
     Dosage: 800 MG DAILY 2 PER DAY
     Dates: start: 20040215, end: 20040815
  3. LEXAPRO [Concomitant]
  4. TYLENOL PM (ACETAMINOPHEN/DIPHENHYDRAMINE HYDROCHLORIDE) [Concomitant]

REACTIONS (8)
  - ALOPECIA [None]
  - CANDIDIASIS [None]
  - CARDIAC FLUTTER [None]
  - DYSPHAGIA [None]
  - FUNGAL INFECTION [None]
  - MUSCLE SPASMS [None]
  - OESOPHAGEAL CANDIDIASIS [None]
  - WHITE BLOOD CELL COUNT DECREASED [None]
